FAERS Safety Report 4566469-7 (Version None)
Quarter: 2005Q1

REPORT INFORMATION
  Report Type: 
  Country: None (occurrence: None)
  Receive Date: 20050128
  Receipt Date: 20050120
  Transmission Date: 20050727
  Serious: Yes (Other)
  Sender: FDA-Public Use
  Company Number: K200500110

PATIENT
  Age: 29 Year
  Sex: Female
  Weight: 55.8 kg

DRUGS (4)
  1. CYTOMEL [Suspect]
     Indication: HYPOTHYROIDISM
     Dosage: SEE IMAGE
     Route: 048
     Dates: start: 20041001, end: 20041122
  2. CYTOMEL [Suspect]
     Indication: HYPOTHYROIDISM
     Dosage: SEE IMAGE
     Route: 048
     Dates: start: 20041124, end: 20050118
  3. SYNTHROID [Concomitant]
  4. ORTHO TRI-CYCLEN [Concomitant]

REACTIONS (11)
  - CHEST DISCOMFORT [None]
  - CHEST PAIN [None]
  - DYSPNOEA [None]
  - HOT FLUSH [None]
  - NAUSEA [None]
  - PANIC ATTACK [None]
  - PRESCRIBED OVERDOSE [None]
  - TACHYCARDIA [None]
  - TREMOR [None]
  - TRI-IODOTHYRONINE INCREASED [None]
  - WEIGHT DECREASED [None]
